FAERS Safety Report 10412662 (Version 1)
Quarter: 2014Q2

REPORT INFORMATION
  Report Type: Spontaneous
  Country: US (occurrence: None)
  Receive Date: 20140604
  Receipt Date: 20140604
  Transmission Date: 20141212
  Serious: Yes (Hospitalization)
  Sender: FDA-Public Use
  Company Number: 163-POMAL-14021876

PATIENT
  Age: 77 Year
  Sex: Female
  Weight: 59.9 kg

DRUGS (2)
  1. POMALYST (POMALIDOMIDE) (3  MILLIGRAM, CAPSULES) [Suspect]
     Indication: PLASMA CELL MYELOMA
     Dosage: 3 MG,  DAYS 21/28  DAYS, PO?
     Route: 048
     Dates: start: 20131005, end: 20131217
  2. VELCADE(BORTEZOMIB)(UNKNOWN) [Concomitant]

REACTIONS (2)
  - Renal failure acute [None]
  - Back pain [None]
